FAERS Safety Report 5854238-7 (Version None)
Quarter: 2008Q3

REPORT INFORMATION
  Report Type: 
  Country: None (occurrence: None)
  Receive Date: 20080822
  Receipt Date: 20080818
  Transmission Date: 20090109
  Serious: Yes (Other)
  Sender: FDA-Public Use
  Company Number: PHHY2008DE18647

PATIENT
  Age: 55 Year
  Sex: Female

DRUGS (1)
  1. ESTRADERM [Suspect]
     Indication: HORMONE REPLACEMENT THERAPY
     Dosage: UNK
     Route: 062

REACTIONS (6)
  - APPLICATION SITE RASH [None]
  - APPLICATION SITE REACTION [None]
  - DERMATITIS CONTACT [None]
  - ECZEMA [None]
  - PRURITUS [None]
  - RASH [None]
